FAERS Safety Report 4295431-7 (Version None)
Quarter: 2004Q1

REPORT INFORMATION
  Report Type: 
  Country: None (occurrence: None)
  Receive Date: 20040212
  Receipt Date: 20040127
  Transmission Date: 20041129
  Serious: Yes (Death, Hospitalization, Other)
  Sender: FDA-Public Use
  Company Number: 169990

PATIENT
  Sex: Male

DRUGS (1)
  1. AVONEX [Suspect]
     Indication: MULTIPLE SCLEROSIS
     Dosage: 30 MCG QW; IM
     Route: 030
     Dates: start: 20030219, end: 20031001

REACTIONS (6)
  - COLON CANCER [None]
  - FALL [None]
  - FEMORAL NECK FRACTURE [None]
  - GASTRIC CANCER [None]
  - METASTASES TO LIVER [None]
  - RENAL CELL CARCINOMA STAGE UNSPECIFIED [None]
